FAERS Safety Report 12485312 (Version 2)
Quarter: 2016Q2

REPORT INFORMATION
  Report Type: Report from Study
  Country: EC (occurrence: EC)
  Receive Date: 20160621
  Receipt Date: 20160625
  Transmission Date: 20160815
  Serious: Yes (Death, Hospitalization)
  Sender: FDA-Public Use
  Company Number: PHHY2016EC084092

PATIENT
  Age: 54 Year
  Sex: Male

DRUGS (1)
  1. TASIGNA [Suspect]
     Active Substance: NILOTINIB
     Indication: CHRONIC MYELOID LEUKAEMIA
     Dosage: 200 MG, BID (TWICE DAILY)
     Route: 048
     Dates: start: 20151118, end: 20160607

REACTIONS (6)
  - Cardio-respiratory arrest [Fatal]
  - Fluid retention [Not Recovered/Not Resolved]
  - Loss of consciousness [Unknown]
  - Fall [Not Recovered/Not Resolved]
  - Syncope [Not Recovered/Not Resolved]
  - Face oedema [Not Recovered/Not Resolved]

NARRATIVE: CASE EVENT DATE: 20160607
